FAERS Safety Report 16929534 (Version 1)
Quarter: 2019Q4

REPORT INFORMATION
  Report Type: Spontaneous
  Country: NL (occurrence: NL)
  Receive Date: 20191017
  Receipt Date: 20191017
  Transmission Date: 20200122
  Serious: Yes (Life-Threatening)
  Sender: FDA-Public Use
  Company Number: NL-TEVA-2019-NL-1123060

PATIENT
  Age: 59 Year
  Sex: Female
  Weight: 50 kg

DRUGS (10)
  1. CLONIDINE. [Suspect]
     Active Substance: CLONIDINE
     Indication: RESTLESSNESS
     Dosage: IV LIQUID 0.15MG / ML; VIA CONTINUOUS PUMP 40 MCG / HOUR
     Dates: start: 20190919, end: 20190923
  2. VIDISIC OOGGEL [Concomitant]
  3. SALBUTAMOL [Concomitant]
     Active Substance: ALBUTEROL
  4. IPRATRPIUM [Concomitant]
  5. IVERMECTINE [Concomitant]
     Dosage: 12 MG
  6. FRAXIPARINE PROFYLAXE [Concomitant]
  7. FUROSEMIDE I.V. [Concomitant]
  8. LORAZEPAM. [Concomitant]
     Active Substance: LORAZEPAM
  9. MAGNESIUM [Concomitant]
     Active Substance: MAGNESIUM
  10. SUFENTANIL POMP 5 MCG/UUR [Concomitant]

REACTIONS (2)
  - Bradycardia [Recovered/Resolved]
  - Cardiac arrest [Recovered/Resolved]

NARRATIVE: CASE EVENT DATE: 20190923
